FAERS Safety Report 6824221-3 (Version None)
Quarter: 2010Q3

REPORT INFORMATION
  Report Type: 
  Country: None (occurrence: None)
  Receive Date: 20100708
  Receipt Date: 20070424
  Transmission Date: 20110219
  Serious: No
  Sender: FDA-Public Use
  Company Number: US-PFIZER INC-2006115933

PATIENT
  Sex: Male
  Weight: 127.01 kg

DRUGS (2)
  1. CHANTIX [Suspect]
     Indication: EX-TOBACCO USER
     Route: 048
     Dates: start: 20060921
  2. CLOZARIL [Concomitant]
     Route: 048

REACTIONS (2)
  - DYSPHAGIA [None]
  - TOBACCO WITHDRAWAL SYMPTOMS [None]
